FAERS Safety Report 16925605 (Version 1)
Quarter: 2019Q4

REPORT INFORMATION
  Report Type: Spontaneous
  Country: US (occurrence: US)
  Receive Date: 20191016
  Receipt Date: 20191016
  Transmission Date: 20200122
  Serious: No
  Sender: FDA-Public Use
  Company Number: US-BAUSCH-BL-2019-054736

PATIENT
  Sex: Female

DRUGS (1)
  1. JUBLIA [Suspect]
     Active Substance: EFINACONAZOLE
     Indication: PRODUCT USED FOR UNKNOWN INDICATION
     Dosage: START DATE: SINCE FEW DAYS
     Route: 065
     Dates: start: 2019

REACTIONS (1)
  - Onychomadesis [Unknown]

NARRATIVE: CASE EVENT DATE: 2019
